APPROVED DRUG PRODUCT: DULERA
Active Ingredient: FORMOTEROL FUMARATE; MOMETASONE FUROATE
Strength: 0.005MG/INH;0.2MG/INH
Dosage Form/Route: AEROSOL, METERED;INHALATION
Application: N022518 | Product #002
Applicant: ORGANON LLC
Approved: Jun 22, 2010 | RLD: Yes | RS: Yes | Type: RX